FAERS Safety Report 7731477-1 (Version None)
Quarter: 2011Q3

REPORT INFORMATION
  Report Type: 
  Country: None (occurrence: None)
  Receive Date: 20110906
  Receipt Date: 20110824
  Transmission Date: 20111222
  Serious: Yes (Other)
  Sender: FDA-Public Use
  Company Number: US-TYCO HEALTHCARE/MALLINCKRODT-T201101638

PATIENT
  Sex: Female

DRUGS (4)
  1. AUGMENTIN '125' [Concomitant]
     Indication: PNEUMONIA
     Dosage: UNK
  2. OXYCODONE HCL [Suspect]
     Indication: PAIN
     Dosage: UNK
  3. VIBRAMYCIN                         /00055702/ [Concomitant]
     Indication: PNEUMONIA
     Dosage: UNK
  4. METHADOSE [Suspect]
     Indication: PAIN
     Dosage: UNK

REACTIONS (2)
  - PNEUMONIA [None]
  - DRUG SCREEN NEGATIVE [None]
